FAERS Safety Report 8814973 (Version 3)
Quarter: 2013Q2

REPORT INFORMATION
  Report Type: Report from Study
  Country: JP (occurrence: JP)
  Receive Date: 20120928
  Receipt Date: 20130412
  Transmission Date: 20140414
  Serious: Yes (Hospitalization, Other)
  Sender: FDA-Public Use
  Company Number: PHHY2012JP083628

PATIENT
  Age: 32 Year
  Sex: Female

DRUGS (33)
  1. FTY 720 [Suspect]
     Indication: MULTIPLE SCLEROSIS
     Dosage: 0.5 MG, QD
     Dates: start: 20120223
  2. ADONA [Concomitant]
     Dosage: 30 MG, UNK
     Route: 048
     Dates: start: 20120423, end: 20120502
  3. ADONA [Concomitant]
     Dosage: 30 MG, UNK
     Route: 048
     Dates: start: 20120723, end: 20120907
  4. ADONA [Concomitant]
     Dosage: 30 MG, UNK
     Route: 048
     Dates: start: 20120903, end: 20120918
  5. ADONA [Concomitant]
     Dosage: 30 MG, UNK
     Route: 048
     Dates: start: 20130121, end: 20130127
  6. RIVOTRIL [Concomitant]
     Dosage: 0.5 MG, QD
     Route: 048
     Dates: end: 20120529
  7. TEGRETOL [Concomitant]
     Dosage: 100 MG, PRN
     Route: 048
  8. RIKAVARIN [Concomitant]
     Dosage: 750 MG, DAILY
     Route: 048
     Dates: start: 20120423, end: 20120502
  9. RIKAVARIN [Concomitant]
     Dosage: 750 MG, DAILY
     Route: 048
     Dates: start: 20120723, end: 20120907
  10. RIKAVARIN [Concomitant]
     Dosage: 750 MG, DAILY
     Route: 048
     Dates: start: 20120903, end: 20120918
  11. RIKAVARIN [Concomitant]
     Dosage: 750 MG, DAILY
     Route: 048
     Dates: start: 20130121, end: 20130127
  12. AMLODIN OD [Concomitant]
     Dosage: 5 MG, DAILY
     Route: 048
  13. MAINTATE [Concomitant]
     Dosage: 5 MG, DAILY
     Route: 048
  14. DIOVAN [Concomitant]
     Dosage: 80 MG, DAILY
     Route: 048
  15. LENDORMIN [Concomitant]
     Dosage: 0.25 MG, PRN
     Route: 048
  16. MYSLEE [Concomitant]
     Dosage: 5 MG, PRN
     Route: 048
  17. LOXONIN [Concomitant]
     Dosage: 60 MG, PRN
     Route: 048
  18. SOL-MELCORT [Concomitant]
     Dosage: 1000 MG, UNK
     Route: 051
     Dates: start: 20121031, end: 20121102
  19. SOL-MELCORT [Concomitant]
     Dosage: 1000 MG, UNK
     Route: 051
     Dates: start: 20121114, end: 20121116
  20. SOL-MELCORT [Concomitant]
     Dosage: 1000 MG, UNK
     Route: 051
     Dates: start: 20130110, end: 20130112
  21. CRESTOR [Concomitant]
     Indication: LOW DENSITY LIPOPROTEIN INCREASED
     Dosage: 2.5 MG, QD
     Dates: start: 20120423
  22. CRESTOR [Concomitant]
     Dosage: 98 MG/DL, UNK
     Route: 048
     Dates: start: 20120507
  23. BERIZYM [Concomitant]
     Dosage: 3 G, QD
     Dates: start: 20120521
  24. METHYCOBAL [Concomitant]
     Dosage: 1500 UG, QD
     Route: 048
     Dates: start: 20120521, end: 20130127
  25. CYMBALTA [Concomitant]
     Dosage: 20 MG, QD
     Route: 048
     Dates: start: 20120530, end: 20120611
  26. PRIMPERAN [Concomitant]
     Dosage: 15 MG, QD
     Route: 048
     Dates: start: 20120531, end: 20120601
  27. NAUZELIN [Concomitant]
     Dosage: 60 MG, QD
     Route: 048
     Dates: start: 20120531, end: 20120601
  28. NAUZELIN [Concomitant]
     Dosage: 60 MG, QD
     Route: 048
     Dates: start: 20121021, end: 20121022
  29. LYRICA [Concomitant]
     Dosage: 75 MG, QD
     Route: 048
     Dates: start: 20120723, end: 20120805
  30. LYRICA [Concomitant]
     Dosage: 150 MG, QD
     Route: 048
     Dates: start: 20120806, end: 20130110
  31. CEFTRIAXONE SODIUM [Concomitant]
     Dosage: 2 G, QD
     Route: 042
     Dates: start: 20121022, end: 20121025
  32. ALLELOCK [Concomitant]
     Dosage: 10 MG, QD
     Route: 048
     Dates: start: 20121217, end: 20121228
  33. KINDAVATE [Concomitant]
     Dosage: 5 G, QD
     Dates: start: 20121217, end: 20121228

REACTIONS (11)
  - Multiple sclerosis relapse [Recovering/Resolving]
  - Muscle spasticity [Not Recovered/Not Resolved]
  - Muscle spasms [Not Recovered/Not Resolved]
  - Pain [Not Recovered/Not Resolved]
  - Lipid metabolism disorder [Recovering/Resolving]
  - Gastrooesophageal reflux disease [Not Recovered/Not Resolved]
  - Anaemia [Recovering/Resolving]
  - Haemoglobin decreased [Unknown]
  - Nausea [Recovered/Resolved]
  - Diarrhoea [Recovered/Resolved]
  - Pharyngitis [Recovered/Resolved]
